FAERS Safety Report 11320992 (Version 2)
Quarter: 2015Q3

REPORT INFORMATION
  Report Type: Spontaneous
  Country: US (occurrence: US)
  Receive Date: 20150729
  Receipt Date: 20150818
  Transmission Date: 20151125
  Serious: No
  Sender: FDA-Public Use
  Company Number: US-PFIZER INC-2015249690

PATIENT
  Age: 84 Year
  Sex: Female
  Weight: 50 kg

DRUGS (1)
  1. PROTONIX [Suspect]
     Active Substance: PANTOPRAZOLE SODIUM
     Indication: HIATUS HERNIA
     Dosage: 40 MG, 1X/DAY (ONCE A DAY WITH BREAKFAST)

REACTIONS (3)
  - Epigastric discomfort [Not Recovered/Not Resolved]
  - Diarrhoea [Unknown]
  - Product label issue [Unknown]

NARRATIVE: CASE EVENT DATE: 201507
